FAERS Safety Report 23601552 (Version 3)
Quarter: 2024Q2

REPORT INFORMATION
  Report Type: Spontaneous
  Country: US (occurrence: US)
  Receive Date: 20240306
  Receipt Date: 20240606
  Transmission Date: 20240715
  Serious: No
  Sender: FDA-Public Use
  Company Number: US-BoehringerIngelheim-2024-BI-012869

PATIENT
  Sex: Male

DRUGS (1)
  1. OFEV [Suspect]
     Active Substance: NINTEDANIB
     Indication: Pulmonary fibrosis
     Route: 048

REACTIONS (6)
  - Illness [Unknown]
  - Dehydration [Unknown]
  - Malaise [Unknown]
  - Diarrhoea [Unknown]
  - Haemorrhage [Unknown]
  - Gastrointestinal disorder [Unknown]
